FAERS Safety Report 24832020 (Version 1)
Quarter: 2025Q1

REPORT INFORMATION
  Report Type: Spontaneous
  Country: US (occurrence: US)
  Receive Date: 20250110
  Receipt Date: 20250110
  Transmission Date: 20250409
  Serious: No
  Sender: ELI LILLY AND COMPANY
  Company Number: US-ELI_LILLY_AND_COMPANY-US202501005812

PATIENT
  Age: 85 Year
  Sex: Male

DRUGS (2)
  1. TRULICITY [Suspect]
     Active Substance: DULAGLUTIDE
     Indication: Blood glucose abnormal
     Dosage: 0.75 MG, WEEKLY (1/W)
     Route: 058
  2. TRULICITY [Suspect]
     Active Substance: DULAGLUTIDE
     Indication: Blood glucose abnormal
     Dosage: 0.75 MG, WEEKLY (1/W)
     Route: 058

REACTIONS (5)
  - Injection site injury [Unknown]
  - Injection site haemorrhage [Unknown]
  - Extra dose administered [Unknown]
  - Inappropriate schedule of product administration [Unknown]
  - Off label use [Unknown]
